FAERS Safety Report 17213464 (Version 1)
Quarter: 2020Q1

REPORT INFORMATION
  Report Type: Spontaneous
  Country: US (occurrence: US)
  Receive Date: 20191227
  Receipt Date: 20191227
  Transmission Date: 20200409
  Serious: Yes (Hospitalization, Other)
  Sender: FDA-Public Use
  Company Number: None

PATIENT
  Age: 44 Year
  Sex: Male

DRUGS (4)
  1. BROM/PSE/DM SYRUP [Concomitant]
     Dates: start: 20190114
  2. AZITHROMYCIN 250 MG TABLETS [Concomitant]
     Dates: start: 20190114
  3. ACTEMRA [Suspect]
     Active Substance: TOCILIZUMAB
     Indication: RHEUMATOID ARTHRITIS
     Dosage: ?          OTHER FREQUENCY:EVERY OTHER WEEK;?
     Route: 058
     Dates: start: 20191115
  4. ENBREL [Concomitant]
     Active Substance: ETANERCEPT
     Dates: start: 20190209

REACTIONS (3)
  - Therapy cessation [None]
  - Dyspepsia [None]
  - Gastric ulcer [None]

NARRATIVE: CASE EVENT DATE: 20191219
